FAERS Safety Report 6094619-2 (Version None)
Quarter: 2009Q1

REPORT INFORMATION
  Report Type: 
  Country: None (occurrence: None)
  Receive Date: 20090226
  Receipt Date: 20090219
  Transmission Date: 20090719
  Serious: Yes (Hospitalization, Other)
  Sender: FDA-Public Use
  Company Number: PHHY2008JP31770

PATIENT
  Age: 25 Year
  Sex: Female

DRUGS (5)
  1. NEORAL [Suspect]
     Indication: SYSTEMIC LUPUS ERYTHEMATOSUS
     Dosage: 100 TO 150 MG/DAY
     Route: 048
     Dates: start: 20080301
  2. NEORAL [Suspect]
     Indication: LUPUS NEPHRITIS
  3. MEDROL [Suspect]
     Indication: SYSTEMIC LUPUS ERYTHEMATOSUS
     Dosage: 12-18 MG/DAY
     Route: 048
     Dates: start: 20040701
  4. MEDROL [Suspect]
     Indication: LUPUS NEPHRITIS
  5. PROGRAF [Suspect]
     Indication: SYSTEMIC LUPUS ERYTHEMATOSUS
     Dosage: 3 MG/DAY
     Route: 048
     Dates: start: 20080101, end: 20080201

REACTIONS (7)
  - FALL [None]
  - LIMB INJURY [None]
  - LOCAL SWELLING [None]
  - NOCARDIOSIS [None]
  - OEDEMA [None]
  - PURULENT DISCHARGE [None]
  - WEIGHT INCREASED [None]
